FAERS Safety Report 6818150-9 (Version None)
Quarter: 2010Q3

REPORT INFORMATION
  Report Type: 
  Country: None (occurrence: None)
  Receive Date: 20100706
  Receipt Date: 20090324
  Transmission Date: 20110219
  Serious: Yes (Hospitalization)
  Sender: FDA-Public Use
  Company Number: US-PFIZER INC-ENC200800201

PATIENT
  Sex: Female

DRUGS (14)
  1. ARGATROBAN [Suspect]
     Indication: HEPARIN-INDUCED THROMBOCYTOPENIA
     Dosage: 2 MCG/KG/MIN
     Route: 042
     Dates: start: 20081026, end: 20081028
  2. ARGATROBAN [Suspect]
     Dosage: 2 MCG/KG/MIN
     Route: 042
  3. WARFARIN [Suspect]
     Dosage: 5 MG, SINGLE
     Route: 048
     Dates: start: 20081027, end: 20081027
  4. AVELOX [Concomitant]
  5. AMLODIPINE [Concomitant]
  6. CALCIUM ACETATE [Concomitant]
  7. VANCOMYCIN [Concomitant]
  8. PERCOCET [Concomitant]
  9. MORPHINE [Concomitant]
  10. REVLIMID [Concomitant]
  11. PHOSLO [Concomitant]
  12. DEXAMETHASONE [Concomitant]
  13. FOLBEE [Concomitant]
  14. NEPHROCAPS [Concomitant]

REACTIONS (1)
  - COAGULATION TIME PROLONGED [None]
